FAERS Safety Report 19584697 (Version 2)
Quarter: 2021Q3

REPORT INFORMATION
  Report Type: Report from Study
  Country: PA (occurrence: PA)
  Receive Date: 20210720
  Receipt Date: 20210730
  Transmission Date: 20211014
  Serious: Yes (Death, Other)
  Sender: FDA-Public Use
  Company Number: PA-INCYTE CORPORATION-2021IN006200

PATIENT

DRUGS (7)
  1. JAKAVI [Suspect]
     Active Substance: RUXOLITINIB
     Indication: MYELOFIBROSIS
     Dosage: 40 MG, DAILY (2 OF 15 MG AND OF 5 MG EVERY 12 HOURS)
     Route: 048
     Dates: start: 202008
  2. ENSURE [NUTRIENTS NOS] [Concomitant]
     Indication: PRODUCT USED FOR UNKNOWN INDICATION
     Dosage: UNK
     Route: 065
  3. JAKAVI [Suspect]
     Active Substance: RUXOLITINIB
     Dosage: 40 MG, BID
     Route: 048
     Dates: start: 202010
  4. VERAPAMIL [Concomitant]
     Active Substance: VERAPAMIL HYDROCHLORIDE
     Indication: THROMBOSIS
     Dosage: 5 MG, QD
     Route: 065
     Dates: start: 2010
  5. ASPIRIN [ACETYLSALICYLIC ACID] [Concomitant]
     Active Substance: ASPIRIN
     Indication: THROMBOSIS
     Dosage: 8 MG, QD
     Route: 065
     Dates: start: 2010
  6. HYDROXYUREA. [Concomitant]
     Active Substance: HYDROXYUREA
     Indication: THROMBOSIS
     Dosage: 1 DF, DAILY
     Route: 065
     Dates: start: 2010
  7. ERYTHROPOIETIN [Concomitant]
     Active Substance: ERYTHROPOIETIN
     Indication: THROMBOSIS
     Dosage: UNK UNK, TIW (STARTED MANY YEARS AGO)
     Route: 065

REACTIONS (9)
  - Incorrect dose administered [Unknown]
  - Cardiac arrest [Fatal]
  - Back injury [Unknown]
  - Joint instability [Unknown]
  - Malaise [Unknown]
  - Drug ineffective [Unknown]
  - Fall [Fatal]
  - Head injury [Fatal]
  - Anaemia [Unknown]

NARRATIVE: CASE EVENT DATE: 202010
